FAERS Safety Report 9298910 (Version 1)
Quarter: 2013Q2

REPORT INFORMATION
  Report Type: Spontaneous
  Country: US (occurrence: US)
  Receive Date: 20130520
  Receipt Date: 20130520
  Transmission Date: 20140414
  Serious: Yes (Other)
  Sender: FDA-Public Use
  Company Number: US-SANOFI-AVENTIS-2012SA060055

PATIENT
  Age: 39 Year
  Sex: Male
  Weight: 151.95 kg

DRUGS (7)
  1. APIDRA [Suspect]
     Indication: TYPE 2 DIABETES MELLITUS
     Dosage: DOSE RANGE FROM 20 UNITS TID TO 25 UNITS TID TO 30 UNITS TID
     Route: 058
     Dates: start: 20120416, end: 20120719
  2. ALLOPURINOL [Concomitant]
     Indication: GOUT
     Route: 065
     Dates: start: 201106
  3. HYDRALAZINE [Concomitant]
     Indication: HYPERTENSION
     Route: 065
     Dates: start: 20110625
  4. COREG [Concomitant]
     Indication: HYPERTENSION
     Route: 065
     Dates: start: 20110628
  5. INSULIN DETEMIR [Concomitant]
     Indication: TYPE 2 DIABETES MELLITUS
     Dosage: DOSE:70 UNIT(S)
     Route: 065
     Dates: start: 201106
  6. VALSARTAN [Concomitant]
     Indication: HYPERTENSION
     Route: 065
     Dates: start: 201106
  7. METFORMIN [Concomitant]
     Indication: TYPE 2 DIABETES MELLITUS
     Route: 065
     Dates: start: 201106

REACTIONS (1)
  - Hypertension [Recovered/Resolved]
